FAERS Safety Report 24969582 (Version 4)
Quarter: 2025Q1

REPORT INFORMATION
  Report Type: Spontaneous
  Country: FR (occurrence: FR)
  Receive Date: 20250214
  Receipt Date: 20250317
  Transmission Date: 20250408
  Serious: Yes (Other)
  Sender: REGENERON
  Company Number: FR-BAYER-2025A018715

PATIENT
  Age: 86 Year
  Sex: Female

DRUGS (2)
  1. EYLEA [Suspect]
     Active Substance: AFLIBERCEPT
     Indication: Age-related macular degeneration
     Dates: start: 20210302, end: 20210302
  2. EYLEA [Suspect]
     Active Substance: AFLIBERCEPT
     Dates: start: 20241022, end: 20241022

REACTIONS (3)
  - Amaurosis fugax [Recovered/Resolved]
  - Blindness [Unknown]
  - Visual impairment [Unknown]

NARRATIVE: CASE EVENT DATE: 20241022
